FAERS Safety Report 5480520-1 (Version None)
Quarter: 2007Q4

REPORT INFORMATION
  Report Type: 
  Country: None (occurrence: None)
  Receive Date: 20071009
  Receipt Date: 20071002
  Transmission Date: 20080405
  Serious: Yes (Hospitalization, Other)
  Sender: FDA-Public Use
  Company Number: PHBS2006DK02700

PATIENT
  Age: 84 Year
  Sex: Female

DRUGS (6)
  1. DIOVAN [Suspect]
     Indication: HYPERTENSION
     Dosage: 80 MG, QD
     Route: 048
     Dates: start: 20051115, end: 20060118
  2. PERINDOPRIL ERBUMINE [Suspect]
     Dosage: 2.8 MG, QD
  3. PARACETAMOL [Concomitant]
     Dosage: 1 G, TID
  4. DETRUSITOL [Concomitant]
     Dosage: 2.8 MG, QD
  5. FUROSEMIDE [Concomitant]
     Dosage: 40 MG, BID
  6. POTASSIUM CHLORIDE [Concomitant]
     Dosage: 750 MG, BID

REACTIONS (3)
  - CARDIAC FAILURE [None]
  - COUGH [None]
  - PNEUMONIA [None]
